FAERS Safety Report 8473704-1 (Version None)
Quarter: 2012Q2

REPORT INFORMATION
  Report Type: 
  Country: None (occurrence: None)
  Receive Date: 20120628
  Receipt Date: 20111014
  Transmission Date: 20120825
  Serious: Yes (Death)
  Sender: FDA-Public Use
  Company Number: US-MYLANLABS-2011S1019312

PATIENT
  Age: 52 Year
  Sex: Male

DRUGS (6)
  1. PRAVASTATIN [Concomitant]
  2. ARTANE [Concomitant]
  3. CLONAZEPAM [Concomitant]
  4. ZOLOFT [Concomitant]
  5. CLOZAPINE [Suspect]
     Indication: SCHIZOPHRENIA
  6. OXYCODONE HCL [Concomitant]

REACTIONS (3)
  - BRAIN CANCER METASTATIC [None]
  - SMALL CELL LUNG CANCER STAGE UNSPECIFIED [None]
  - METASTATIC NEOPLASM [None]
